FAERS Safety Report 19190174 (Version 1)
Quarter: 2021Q2

REPORT INFORMATION
  Report Type: Report from Study
  Country: US (occurrence: US)
  Receive Date: 20210428
  Receipt Date: 20210428
  Transmission Date: 20210717
  Serious: Yes (Hospitalization)
  Sender: FDA-Public Use
  Company Number: US-REGENERON PHARMACEUTICALS, INC.-2021-24499

PATIENT

DRUGS (20)
  1. EPINEPHRINE W/LIDOCAINE [Concomitant]
     Active Substance: EPINEPHRINE\LIDOCAINE
     Indication: PROPHYLAXIS
     Dosage: 10 ML, OTO
     Route: 058
     Dates: start: 20210125, end: 20210125
  2. DIPHENHYDRAMINE. [Concomitant]
     Active Substance: DIPHENHYDRAMINE
     Indication: ANAPHYLACTIC REACTION
     Dosage: 50 MG, AS NECESSARY
     Route: 042
     Dates: start: 20210209, end: 20210215
  3. LMX4 [Concomitant]
     Active Substance: LIDOCAINE
     Indication: PROPHYLAXIS
     Dosage: 1 APPLICATION, AS NECESSARY
     Route: 061
     Dates: start: 20210118
  4. ACETAMINOPHEN. [Concomitant]
     Active Substance: ACETAMINOPHEN
     Indication: HEADACHE
     Dosage: 500 MG, Q6H
     Route: 048
     Dates: start: 20210125
  5. CEMIPLIMAB [Suspect]
     Active Substance: CEMIPLIMAB
     Indication: MALIGNANT GLIOMA
     Dosage: 3 MG/KG, Q2W
     Route: 042
     Dates: start: 20210126, end: 20210209
  6. FENTANYL. [Concomitant]
     Active Substance: FENTANYL
     Indication: ANAESTHESIA
     Dosage: 0.1 MG, OTO
     Route: 042
     Dates: start: 20210125, end: 20210125
  7. RADIOTHERAPY [Concomitant]
     Active Substance: RADIATION THERAPY
     Indication: MALIGNANT GLIOMA
     Dosage: 3.5 CGY
     Dates: start: 20210128
  8. ONDANSETRON [Concomitant]
     Active Substance: ONDANSETRON
     Indication: PROPHYLAXIS
     Dosage: 8 MG, OTO
     Route: 042
     Dates: start: 20210126, end: 20210126
  9. ONDANSETRON [Concomitant]
     Active Substance: ONDANSETRON
     Dosage: 8 MG, OTO
     Route: 042
     Dates: start: 20210209, end: 20210209
  10. TRILEPTAL [Concomitant]
     Active Substance: OXCARBAZEPINE
     Indication: SEIZURE
     Dosage: 300 MG, BID FOR 3 DAYS, 450 MG BID FOR DAYS, THEN CONTINUE AT 600 MG BID
     Route: 048
     Dates: start: 20210204, end: 20210206
  11. MIDAZOLAM. [Concomitant]
     Active Substance: MIDAZOLAM
     Indication: SEIZURE
     Dosage: 5 MG, AS NECESSARY
     Route: 045
     Dates: start: 20210204
  12. LEVETIRACETAM. [Concomitant]
     Active Substance: LEVETIRACETAM
     Indication: SEIZURE
     Dosage: 750 MG, BID
     Route: 048
     Dates: start: 20201217, end: 20210215
  13. ONDANSETRON [Concomitant]
     Active Substance: ONDANSETRON
     Indication: NAUSEA
     Dosage: 8 MG, TID
     Route: 048
     Dates: start: 20210125
  14. CEFAZOLIN [Concomitant]
     Active Substance: CEFAZOLIN
     Indication: PROPHYLAXIS
     Dosage: 1551 MG, OTO
     Route: 042
     Dates: start: 20210125, end: 20210125
  15. EPINEPHRINE W/LIDOCAINE [Concomitant]
     Active Substance: EPINEPHRINE\LIDOCAINE
     Dosage: 0.5 ML, OTO
     Route: 058
     Dates: start: 20210126, end: 20210126
  16. LIDOCAINE. [Concomitant]
     Active Substance: LIDOCAINE
     Indication: ANAESTHESIA
     Dosage: 20 MG, OTO
     Route: 042
     Dates: start: 20210125, end: 20210125
  17. PROPOFOL. [Concomitant]
     Active Substance: PROPOFOL
     Indication: ANAESTHESIA
     Dosage: 300 MG, QD
     Route: 042
     Dates: start: 20210125, end: 20210125
  18. TRILEPTAL [Concomitant]
     Active Substance: OXCARBAZEPINE
     Dosage: 300 MG, BID FOR 3 DAYS, 450 MG BID FOR DAYS, THEN CONTINUE AT 600 MG BID
     Route: 048
     Dates: start: 20210207, end: 20210209
  19. TRILEPTAL [Concomitant]
     Active Substance: OXCARBAZEPINE
     Dosage: 600 MG, BID
     Route: 048
     Dates: start: 20210210, end: 20210214
  20. EPINEPHRINE W/LIDOCAINE [Concomitant]
     Active Substance: EPINEPHRINE\LIDOCAINE
     Dosage: 0.5 ML, OTO
     Route: 058
     Dates: start: 20210209, end: 20210214

REACTIONS (1)
  - Drug reaction with eosinophilia and systemic symptoms [Recovered/Resolved]

NARRATIVE: CASE EVENT DATE: 20210214
